FAERS Safety Report 8847578 (Version 1)
Quarter: 2012Q4

REPORT INFORMATION
  Report Type: 
  Country: US (occurrence: US)
  Receive Date: 20121018
  Receipt Date: 20121018
  Transmission Date: 20130627
  Serious: No
  Sender: FDA-Public Use
  Company Number: US-ASTRAZENECA-2012SE73896

PATIENT
  Sex: Female

DRUGS (4)
  1. PULMICORT TURBUHALER [Suspect]
     Indication: ASTHMA
     Route: 055
  2. ADVAIR [Concomitant]
  3. FLONASE [Concomitant]
  4. SINGULAIR [Concomitant]

REACTIONS (2)
  - Asthma [Unknown]
  - Drug dose omission [Unknown]
